FAERS Safety Report 23385138 (Version 1)
Quarter: 2024Q1

REPORT INFORMATION
  Report Type: Spontaneous
  Country: US (occurrence: US)
  Receive Date: 20240110
  Receipt Date: 20240110
  Transmission Date: 20240410
  Serious: Yes (Other)
  Sender: FDA-Public Use
  Company Number: US-BRISTOL-MYERS SQUIBB COMPANY-2024-001243

PATIENT
  Age: 53 Year
  Sex: Female

DRUGS (1)
  1. ORENCIA [Suspect]
     Active Substance: ABATACEPT
     Indication: Product used for unknown indication

REACTIONS (8)
  - Purpura senile [Unknown]
  - Ecchymosis [Unknown]
  - Skin plaque [Unknown]
  - Psoriasis [Unknown]
  - Contusion [Unknown]
  - Tenderness [Unknown]
  - Bursitis [Unknown]
  - Osteonecrosis [Unknown]
